FAERS Safety Report 13950013 (Version 3)
Quarter: 2017Q4

REPORT INFORMATION
  Report Type: Report from Study
  Country: NL (occurrence: NL)
  Receive Date: 20170908
  Receipt Date: 20171020
  Transmission Date: 20180320
  Serious: Yes (Hospitalization)
  Sender: FDA-Public Use
  Company Number: NL-IPSEN BIOPHARMACEUTICALS, INC.-2017-10192

PATIENT
  Age: 37 Year
  Sex: Female

DRUGS (2)
  1. SOMATULINE AUTOSOLUTION 120MG [Suspect]
     Active Substance: LANREOTIDE ACETATE
     Indication: POLYCYSTIC LIVER DISEASE
     Dosage: 120 MG
     Route: 058
     Dates: start: 20170711, end: 201709
  2. SOMATULINE AUTOSOLUTION 120MG [Suspect]
     Active Substance: LANREOTIDE ACETATE
     Indication: OFF LABEL USE
     Dosage: 120 MG
     Route: 058
     Dates: start: 20170911

REACTIONS (6)
  - Off label use [Unknown]
  - Fatigue [Not Recovered/Not Resolved]
  - Inappropriate schedule of drug administration [Unknown]
  - Dizziness [Not Recovered/Not Resolved]
  - Alopecia [Not Recovered/Not Resolved]
  - Vestibular neuronitis [Recovered/Resolved]

NARRATIVE: CASE EVENT DATE: 2017
